FAERS Safety Report 16858332 (Version 1)
Quarter: 2019Q3

REPORT INFORMATION
  Report Type: Spontaneous
  Country: DE (occurrence: DE)
  Receive Date: 20190926
  Receipt Date: 20190926
  Transmission Date: 20191005
  Serious: Yes (Life-Threatening, Hospitalization, Disabling, Other)
  Sender: FDA-Public Use
  Company Number: DE-SHIRE-DE201931305

PATIENT

DRUGS (1)
  1. FOSRENOL [Suspect]
     Active Substance: LANTHANUM CARBONATE
     Indication: DIALYSIS
     Dosage: 1-1-1
     Route: 048
     Dates: start: 2010, end: 2019

REACTIONS (2)
  - Mechanical ileus [Recovered/Resolved with Sequelae]
  - Wrong technique in product usage process [Unknown]

NARRATIVE: CASE EVENT DATE: 2019
